FAERS Safety Report 16440954 (Version 1)
Quarter: 2019Q2

REPORT INFORMATION
  Report Type: Spontaneous
  Country: US (occurrence: US)
  Receive Date: 20190617
  Receipt Date: 20190617
  Transmission Date: 20190711
  Serious: No
  Sender: FDA-Public Use
  Company Number: US-009507513-1906USA005928

PATIENT

DRUGS (2)
  1. PROVENTIL [Suspect]
     Active Substance: ALBUTEROL
     Dosage: SECOND PROVENTIL
  2. PROVENTIL [Suspect]
     Active Substance: ALBUTEROL
     Dosage: RECEIVED APPROXIMATELY 120 DOSES OF FIRST UNIT

REACTIONS (4)
  - Poor quality device used [Unknown]
  - Product quality issue [Unknown]
  - Product administration error [Unknown]
  - No adverse event [Unknown]
